FAERS Safety Report 9015917 (Version 3)
Quarter: 2013Q1

REPORT INFORMATION
  Report Type: Report from Study
  Country: US (occurrence: US)
  Receive Date: 20130116
  Receipt Date: 20130219
  Transmission Date: 20140127
  Serious: Yes (Hospitalization)
  Sender: FDA-Public Use
  Company Number: US-PFIZER INC-2013011447

PATIENT
  Age: 75 Year
  Sex: Male
  Weight: 92.08 kg

DRUGS (4)
  1. TEMSIROLIMUS [Suspect]
     Indication: MANTLE CELL LYMPHOMA
     Dosage: 20 MG, WEEKLY
     Route: 042
     Dates: start: 20121011, end: 20130103
  2. VELCADE [Suspect]
     Indication: MANTLE CELL LYMPHOMA
     Dosage: 2.7 MG, WEEKLY
     Route: 042
     Dates: start: 20121011, end: 20130103
  3. ACYCLOVIR [Concomitant]
     Dosage: 800 MG, 2X/DAY
     Route: 048
     Dates: start: 20121121
  4. GABAPENTIN [Concomitant]
     Dosage: 600 MG, 3X/DAY
     Route: 048
     Dates: start: 20121121

REACTIONS (1)
  - Dehydration [Recovered/Resolved]
